FAERS Safety Report 11191889 (Version 1)
Quarter: 2015Q2

REPORT INFORMATION
  Report Type: Spontaneous
  Country: AU (occurrence: None)
  Receive Date: 20150612
  Receipt Date: 20150612
  Transmission Date: 20150821
  Serious: Yes (Hospitalization)
  Sender: FDA-Public Use
  Company Number: AU-LHC-2015065

PATIENT
  Age: 16 Month
  Sex: Male

DRUGS (1)
  1. NITROUS OXIDE. [Suspect]
     Active Substance: NITROUS OXIDE
     Indication: ANAESTHESIA
     Route: 055

REACTIONS (4)
  - Lung infiltration [None]
  - Aspiration [None]
  - Cyanosis [None]
  - Laryngospasm [None]
